FAERS Safety Report 10367233 (Version 1)
Quarter: 2014Q3

REPORT INFORMATION
  Report Type: Spontaneous
  Country: US (occurrence: None)
  Receive Date: 20140805
  Receipt Date: 20140805
  Transmission Date: 20150326
  Serious: Yes (Life-Threatening, Hospitalization)
  Sender: FDA-Public Use
  Company Number: None

PATIENT
  Age: 76 Year
  Sex: Male
  Weight: 95.26 kg

DRUGS (1)
  1. LEVAQUIN [Suspect]
     Active Substance: LEVOFLOXACIN
     Dates: start: 20140702, end: 20140708

REACTIONS (7)
  - Dehydration [None]
  - Clostridium difficile infection [None]
  - Dialysis [None]
  - Diarrhoea [None]
  - White blood cell count increased [None]
  - Intestinal perforation [None]
  - Renal failure [None]

NARRATIVE: CASE EVENT DATE: 20140711
